FAERS Safety Report 5844452-9 (Version None)
Quarter: 2008Q3

REPORT INFORMATION
  Report Type: 
  Country: None (occurrence: None)
  Receive Date: 20080812
  Receipt Date: 20080805
  Transmission Date: 20090109
  Serious: Yes (Other)
  Sender: FDA-Public Use
  Company Number: CHPA2008US13040

PATIENT
  Age: 76 Year
  Sex: Male

DRUGS (3)
  1. 4 WAY FAST ACTING NASAL SPRAY (NCH) (PHENYLEPHRINE) NASAL SPRAY [Suspect]
     Indication: NASAL CONGESTION
     Dosage: 6 TIMES DURING THE DAY AND EVERY HOUR AT NIGHT, INHALATION
     Route: 055
  2. VERAPAMIL [Concomitant]
  3. SINEX (PHENYLEPHRINE HYDROCHLORIDE) [Concomitant]

REACTIONS (5)
  - DRUG DEPENDENCE [None]
  - DYSPNOEA [None]
  - INAPPROPRIATE SCHEDULE OF DRUG ADMINISTRATION [None]
  - INTENTIONAL DRUG MISUSE [None]
  - NASOPHARYNGEAL SURGERY [None]
